FAERS Safety Report 14632388 (Version 1)
Quarter: 2018Q1

REPORT INFORMATION
  Report Type: Spontaneous
  Country: US (occurrence: US)
  Receive Date: 20180313
  Receipt Date: 20180313
  Transmission Date: 20180509
  Serious: No
  Sender: FDA-Public Use
  Company Number: US-MATRIXX INITIATIVES, INC.-2043642

PATIENT
  Age: 64 Year
  Sex: Female

DRUGS (2)
  1. UNSPECIFIED SEASONAL ALLERGY MEDICATION [Concomitant]
  2. ZICAM COLD REMEDY [Suspect]
     Active Substance: HOMEOPATHICS\ZINC ACETATE\ZINC GLUCONATE
     Indication: NASOPHARYNGITIS
     Route: 048
     Dates: start: 20180311, end: 20180311

REACTIONS (1)
  - Ageusia [Recovered/Resolved]
